FAERS Safety Report 18207500 (Version 1)
Quarter: 2020Q3

REPORT INFORMATION
  Report Type: Spontaneous
  Country: US (occurrence: US)
  Receive Date: 20200828
  Receipt Date: 20200828
  Transmission Date: 20201103
  Serious: Yes (Hospitalization, Other)
  Sender: FDA-Public Use
  Company Number: US-CATALENT PHARMA SOLUTIONS-CAT-000187-2020

PATIENT
  Age: 43 Year
  Sex: Male

DRUGS (7)
  1. VALPROIC ACID. [Suspect]
     Active Substance: VALPROIC ACID
     Indication: PARTIAL SEIZURES
     Dosage: 1500 MILLIGRAM, DAILY
     Route: 065
  2. LEVETIRACETAM. [Concomitant]
     Active Substance: LEVETIRACETAM
     Indication: PARTIAL SEIZURES
     Dosage: MAXIMAL DOSE OF 4000 MG DAILY
     Route: 065
  3. VALPROIC ACID. [Concomitant]
     Active Substance: VALPROIC ACID
     Indication: STATUS EPILEPTICUS
     Dosage: 750 MILLIGRAM
     Route: 042
  4. LORAZEPAM. [Concomitant]
     Active Substance: LORAZEPAM
     Indication: STATUS EPILEPTICUS
     Dosage: UNK
     Route: 042
  5. VALPROIC ACID. [Interacting]
     Active Substance: VALPROIC ACID
     Dosage: 2000 MILLIGRAM, DAILY
     Route: 065
  6. ZONISAMIDE. [Interacting]
     Active Substance: ZONISAMIDE
     Dosage: 500 MILLIGRAM, DAILY
     Route: 065
  7. ZONISAMIDE. [Interacting]
     Active Substance: ZONISAMIDE
     Indication: PARTIAL SEIZURES
     Dosage: 350 MILLIGRAM, DAILY
     Route: 065

REACTIONS (3)
  - Weight increased [Unknown]
  - Drug interaction [Recovered/Resolved]
  - Hyperammonaemic encephalopathy [Recovering/Resolving]
